FAERS Safety Report 16592630 (Version 2)
Quarter: 2019Q3

REPORT INFORMATION
  Report Type: Spontaneous
  Country: US (occurrence: US)
  Receive Date: 20190718
  Receipt Date: 20190724
  Transmission Date: 20191004
  Serious: No
  Sender: FDA-Public Use
  Company Number: US-GALDERMA-US19011027

PATIENT

DRUGS (7)
  1. PROACTIV MD BALANCING TONER [Concomitant]
     Active Substance: COSMETICS
     Indication: RASH PAPULAR
     Route: 061
  2. PROACTIV MD DAILY OIL CONTROL SPF 30 [Suspect]
     Active Substance: AVOBENZONE\OCTISALATE\OCTOCRYLENE
     Indication: RASH PAPULAR
     Route: 061
  3. PROACTIV EYE BRIGHTENING SERUM [Concomitant]
     Active Substance: COSMETICS
     Indication: RASH PAPULAR
     Route: 061
  4. PROACTIV MD DEEP CLEANSING FACE WASH [Concomitant]
     Active Substance: COSMETICS
     Indication: RASH PAPULAR
     Route: 061
  5. PROACTIV MD ADAPALENE ACNE TREATMENT [Suspect]
     Active Substance: ADAPALENE
     Indication: RASH PAPULAR
     Dosage: 0.1%
     Route: 061
  6. PROACTIV DETOX HYDROGEL FACE MASK [Concomitant]
     Indication: RASH PAPULAR
     Route: 061
  7. PROACTIV GREEN TEA MOISTURIZER [Concomitant]
     Active Substance: COSMETICS
     Indication: RASH PAPULAR
     Route: 061

REACTIONS (2)
  - Product use in unapproved indication [Recovered/Resolved]
  - Acne [Unknown]
